FAERS Safety Report 21746898 (Version 1)
Quarter: 2022Q4

REPORT INFORMATION
  Report Type: Spontaneous
  Country: ES (occurrence: ES)
  Receive Date: 20221219
  Receipt Date: 20221219
  Transmission Date: 20230113
  Serious: Yes (Other)
  Sender: FDA-Public Use
  Company Number: ES-MLMSERVICE-20221202-3959005-1

PATIENT
  Age: 67 Year
  Sex: Female

DRUGS (6)
  1. QUETIAPINE [Suspect]
     Active Substance: QUETIAPINE
     Indication: Major depression
  2. DULOXETINE [Concomitant]
     Active Substance: DULOXETINE
     Indication: Major depression
  3. ALPRAZOLAM [Concomitant]
     Active Substance: ALPRAZOLAM
     Indication: Major depression
     Dosage: 0.5MG (1 / 2-1 / 2.0)
  4. QUETIAPINE [Suspect]
     Active Substance: QUETIAPINE
     Indication: Major depression
     Dosage: REDUCE THE NEUROLEPTIC DOSE BY HALF
  5. QUETIAPINE [Suspect]
     Active Substance: QUETIAPINE
     Indication: Major depression
  6. QUETIAPINE [Suspect]
     Active Substance: QUETIAPINE
     Indication: Major depression

REACTIONS (3)
  - Sensory disturbance [Recovered/Resolved]
  - Taste disorder [Recovered/Resolved]
  - Burning mouth syndrome [Recovered/Resolved]
